FAERS Safety Report 4325308-X (Version None)
Quarter: 2004Q1

REPORT INFORMATION
  Report Type: 
  Country: None (occurrence: None)
  Receive Date: 20040323
  Receipt Date: 20040206
  Transmission Date: 20041129
  Serious: Yes (Death, Hospitalization)
  Sender: FDA-Public Use
  Company Number: 04P-013-0249887-00

PATIENT
  Age: 86 Year
  Sex: Female
  Weight: 58 kg

DRUGS (12)
  1. HUMIRA [Suspect]
     Indication: RHEUMATOID ARTHRITIS
     Dosage: 40 MG, 1 IN 2 WK, SUBCUTANEOUS
     Route: 058
     Dates: start: 20030807, end: 20040206
  2. AMLODIPINE BESYLATE [Concomitant]
  3. RANITIDINE [Concomitant]
  4. ISOSORBIDE DINITRATE [Concomitant]
  5. CLOPIDOGREL BISULFATE [Concomitant]
  6. CIPROFIBRATE [Concomitant]
  7. FOLIC ACID [Concomitant]
  8. HYZAAR [Concomitant]
  9. AURANOFIN [Concomitant]
  10. SULFASALAZINE [Concomitant]
  11. METHOTREXATE SODIUM [Concomitant]
  12. ISOSORBIDE MONONITRATE [Concomitant]

REACTIONS (9)
  - ABDOMINAL DISCOMFORT [None]
  - BRONCHITIS [None]
  - CARDIAC FAILURE [None]
  - GENERAL PHYSICAL HEALTH DETERIORATION [None]
  - MENTAL DISORDER [None]
  - OEDEMA PERIPHERAL [None]
  - RESPIRATORY FAILURE [None]
  - SUPERINFECTION LUNG [None]
  - TUBERCULOSIS [None]
